FAERS Safety Report 12450653 (Version 1)
Quarter: 2016Q2

REPORT INFORMATION
  Report Type: Spontaneous
  Country: US (occurrence: None)
  Receive Date: 20160608
  Receipt Date: 20160608
  Transmission Date: 20160815
  Serious: Yes (Hospitalization, Other)
  Sender: FDA-Public Use
  Company Number: None

PATIENT
  Age: 45 Year
  Sex: Female
  Weight: 58.97 kg

DRUGS (8)
  1. BENADRYL [Concomitant]
     Active Substance: DIPHENHYDRAMINE HYDROCHLORIDE
  2. CLINDAMYCIN [Concomitant]
     Active Substance: CLINDAMYCIN\CLINDAMYCIN PHOSPHATE
  3. AMOXICILLIN WALGREENS [Suspect]
     Active Substance: AMOXICILLIN
     Indication: TOOTH EXTRACTION
     Route: 048
     Dates: start: 20160531, end: 20160601
  4. IBUPROFEN. [Concomitant]
     Active Substance: IBUPROFEN
  5. PEPCID [Concomitant]
     Active Substance: FAMOTIDINE
  6. CIPROFLOXACIN. [Concomitant]
     Active Substance: CIPROFLOXACIN
  7. AMOXICILLIN WALGREENS [Suspect]
     Active Substance: AMOXICILLIN
     Indication: PROPHYLAXIS
     Route: 048
     Dates: start: 20160531, end: 20160601
  8. PREDNISONE. [Concomitant]
     Active Substance: PREDNISONE

REACTIONS (9)
  - Tachycardia [None]
  - Hypertension [None]
  - Oedema [None]
  - Swelling face [None]
  - Dysphonia [None]
  - Rash pruritic [None]
  - Chills [None]
  - Rash generalised [None]
  - Skin discolouration [None]

NARRATIVE: CASE EVENT DATE: 20160602
